FAERS Safety Report 9642047 (Version 3)
Quarter: 2014Q1

REPORT INFORMATION
  Report Type: Spontaneous
  Country: DE (occurrence: DE)
  Receive Date: 20131023
  Receipt Date: 20140225
  Transmission Date: 20141002
  Serious: Yes (Other)
  Sender: FDA-Public Use
  Company Number: DE-OTSUKA-EU-2013-10252

PATIENT
  Age: 54 Year
  Sex: Male

DRUGS (4)
  1. PLETAL [Suspect]
     Indication: ARTERIAL OCCLUSIVE DISEASE
     Dosage: 50 MG MILLIGRAM(S), DAILY DOSE
     Route: 065
     Dates: start: 20120705, end: 201207
  2. ZANIPRESS [Concomitant]
     Indication: HYPERTENSION
     Dosage: 1 DF DOSAGE FORM, DAILY DOSE
     Route: 048
  3. ACETYLSALICYLIC ACID [Concomitant]
     Indication: PERIPHERAL ARTERIAL OCCLUSIVE DISEASE
     Dosage: 100 MG MILLIGRAM(S), DAILY DOSE
     Route: 048
  4. PROSTAVASIN [Concomitant]
     Dosage: UNK, UNKNOWN
     Route: 042

REACTIONS (1)
  - Hallucination, visual [Recovered/Resolved]
